FAERS Safety Report 20569453 (Version 1)
Quarter: 2022Q1

REPORT INFORMATION
  Report Type: Spontaneous
  Country: US (occurrence: US)
  Receive Date: 20220309
  Receipt Date: 20220309
  Transmission Date: 20220424
  Serious: No
  Sender: FDA-Public Use
  Company Number: US-GILEAD-2022-0572376

PATIENT
  Sex: Female

DRUGS (3)
  1. SOFOSBUVIR\VELPATASVIR [Suspect]
     Active Substance: SOFOSBUVIR\VELPATASVIR
     Indication: Chronic hepatitis C
     Dosage: 1 DOSAGE FORM, QD
     Route: 048
     Dates: start: 20220211
  2. AMPHETAMINE SULFATE [Concomitant]
     Active Substance: AMPHETAMINE SULFATE
  3. LO LOESTRIN FE [Concomitant]
     Active Substance: ETHINYL ESTRADIOL\NORETHINDRONE ACETATE

REACTIONS (2)
  - Headache [Recovered/Resolved]
  - Fatigue [Not Recovered/Not Resolved]
